FAERS Safety Report 22251874 (Version 3)
Quarter: 2023Q2

REPORT INFORMATION
  Report Type: Spontaneous
  Country: US (occurrence: US)
  Receive Date: 20230425
  Receipt Date: 20230524
  Transmission Date: 20230721
  Serious: No
  Sender: FDA-Public Use
  Company Number: US-BIOMARINAP-US-2023-149907

PATIENT

DRUGS (2)
  1. PALYNZIQ [Suspect]
     Active Substance: PEGVALIASE-PQPZ
     Indication: Phenylketonuria
     Dosage: 2.5 MILLIGRAM, QW
     Route: 058
     Dates: start: 202304
  2. ESCITALOPRAM [Concomitant]
     Active Substance: ESCITALOPRAM OXALATE
     Indication: Anxiety
     Dosage: 10 MILLIGRAM, PRN

REACTIONS (9)
  - Pain [Unknown]
  - Dysphonia [Unknown]
  - Influenza like illness [Unknown]
  - Anxiety [Unknown]
  - Fatigue [Unknown]
  - Headache [Recovered/Resolved]
  - Arthralgia [Unknown]
  - Injection site erythema [Unknown]
  - Injection site rash [Unknown]
